FAERS Safety Report 8154646-8 (Version None)
Quarter: 2012Q1

REPORT INFORMATION
  Report Type: 
  Country: None (occurrence: None)
  Receive Date: 20120221
  Receipt Date: 20120220
  Transmission Date: 20120608
  Serious: Yes (Other)
  Sender: FDA-Public Use
  Company Number: US-PFIZER INC-2009151205

PATIENT
  Sex: Female
  Weight: 71.655 kg

DRUGS (11)
  1. LEXAPRO [Concomitant]
     Indication: DEPRESSION
     Dosage: 20 MG, DAILY
  2. LAMICTAL [Concomitant]
     Dosage: UNK
  3. CHANTIX [Suspect]
     Indication: SMOKING CESSATION THERAPY
     Dosage: 1 MG, 2X/DAY
     Route: 048
     Dates: start: 20081230
  4. IBUPROFEN [Concomitant]
     Indication: ARTHROPATHY
     Dosage: UNK
  5. DOXYCYCLINE HYCLATE [Concomitant]
     Dosage: UNK
  6. ZOCOR [Concomitant]
     Indication: BLOOD CHOLESTEROL INCREASED
     Dosage: 40 MG, DAILY
  7. PAXIL CR [Concomitant]
     Indication: ANXIETY
  8. LYRICA [Suspect]
     Indication: FIBROMYALGIA
     Dosage: UNK
     Dates: start: 20090101, end: 20090101
  9. CHANTIX [Suspect]
     Dosage: 0.5 MG, 1X/DAY
     Dates: start: 20090101, end: 20090101
  10. KLONOPIN [Concomitant]
     Dosage: UNK
  11. PAXIL CR [Concomitant]
     Indication: DEPRESSION
     Dosage: 25 MG, DAILY

REACTIONS (7)
  - HYPERSENSITIVITY [None]
  - SUICIDAL IDEATION [None]
  - INCORRECT DOSE ADMINISTERED [None]
  - UTERINE DISORDER [None]
  - NAUSEA [None]
  - HEADACHE [None]
  - WITHDRAWAL SYNDROME [None]
